FAERS Safety Report 10415519 (Version 1)
Quarter: 2014Q3

REPORT INFORMATION
  Report Type: Spontaneous
  Country: FR (occurrence: FR)
  Receive Date: 20140828
  Receipt Date: 20140828
  Transmission Date: 20150326
  Serious: Yes (Death, Hospitalization, Other)
  Sender: FDA-Public Use
  Company Number: FR-SA-2014SA116310

PATIENT
  Age: 83 Year
  Sex: Female

DRUGS (15)
  1. STILNOX [Suspect]
     Active Substance: ZOLPIDEM TARTRATE
     Indication: INSOMNIA
     Route: 048
     Dates: end: 20140726
  2. KARDEGIC [Concomitant]
     Active Substance: ASPIRIN LYSINE
  3. DIFFU K [Concomitant]
     Active Substance: POTASSIUM CHLORIDE
  4. ZOLPIDEM [Concomitant]
     Active Substance: ZOLPIDEM\ZOLPIDEM TARTRATE
  5. SERESTA [Suspect]
     Active Substance: OXAZEPAM
     Indication: ANXIETY
     Dosage: DOSE- DAILY DOSE INCREASED
     Route: 048
     Dates: start: 20140623, end: 20140726
  6. RISPERDAL [Concomitant]
     Active Substance: RISPERIDONE
     Indication: ANXIETY
     Route: 048
     Dates: start: 20140722, end: 20140726
  7. MIANSERINE [Suspect]
     Active Substance: MIANSERIN HYDROCHLORIDE
     Indication: ANXIETY
     Route: 048
     Dates: start: 20140623, end: 20140726
  8. COUMADINE [Concomitant]
     Active Substance: WARFARIN SODIUM
  9. LASILIX [Concomitant]
     Active Substance: FUROSEMIDE
  10. TAREG [Concomitant]
     Active Substance: VALSARTAN
  11. EUPANTOL [Concomitant]
     Active Substance: PANTOPRAZOLE SODIUM
  12. DOLIPRANE [Concomitant]
     Active Substance: ACETAMINOPHEN
  13. SELOKEN [Concomitant]
     Active Substance: METOPROLOL
  14. SERESTA [Suspect]
     Active Substance: OXAZEPAM
     Indication: ANXIETY
     Route: 048
     Dates: end: 20140623
  15. PROCORALAN [Concomitant]
     Active Substance: IVABRADINE

REACTIONS (5)
  - Dyspnoea [Fatal]
  - Respiratory distress [Fatal]
  - Pneumonia aspiration [Fatal]
  - Fall [Unknown]
  - General physical health deterioration [Unknown]

NARRATIVE: CASE EVENT DATE: 201407
